FAERS Safety Report 4889291-0 (Version None)
Quarter: 2006Q1

REPORT INFORMATION
  Report Type: 
  Country: None (occurrence: None)
  Receive Date: 20060120
  Receipt Date: 20060120
  Transmission Date: 20060701
  Serious: Yes (Hospitalization)
  Sender: FDA-Public Use
  Company Number: None

PATIENT
  Age: 65 Year
  Sex: Female

DRUGS (1)
  1. METHOTREXATE [Suspect]
     Indication: MANTLE CELL LYMPHOMA
     Dates: start: 20041124, end: 20041125

REACTIONS (2)
  - DIARRHOEA [None]
  - PANCYTOPENIA [None]
